FAERS Safety Report 8508747-2 (Version None)
Quarter: 2012Q3

REPORT INFORMATION
  Report Type: 
  Country: None (occurrence: None)
  Receive Date: 20120713
  Receipt Date: 20120703
  Transmission Date: 20120928
  Serious: Yes (Other)
  Sender: FDA-Public Use
  Company Number: US-JNJFOC-20120407337

PATIENT
  Sex: Female
  Weight: 95.26 kg

DRUGS (6)
  1. LISINOPRIL [Concomitant]
     Indication: HYPERTENSION
     Route: 048
     Dates: start: 20060101
  2. REMICADE [Suspect]
     Indication: COLITIS ULCERATIVE
     Route: 042
     Dates: start: 20110301, end: 20120203
  3. VITAMIN D [Concomitant]
     Route: 065
  4. FOLIC ACID [Concomitant]
     Indication: COLITIS ULCERATIVE
     Route: 048
     Dates: start: 20020101
  5. CELEXA [Concomitant]
     Indication: DEPRESSION
     Route: 065
  6. CALCIUM [Concomitant]
     Indication: NUTRITIONAL SUPPORT
     Route: 065

REACTIONS (17)
  - GASTROENTERITIS VIRAL [None]
  - CROHN'S DISEASE [None]
  - MYALGIA [None]
  - HAEMATOCHEZIA [None]
  - LUPUS-LIKE SYNDROME [None]
  - SKIN CANCER [None]
  - DIARRHOEA [None]
  - JOINT SWELLING [None]
  - PAIN [None]
  - FIBROMYALGIA [None]
  - C-REACTIVE PROTEIN INCREASED [None]
  - HYPOTENSION [None]
  - DRUG INTOLERANCE [None]
  - ARTHRALGIA [None]
  - ANTINUCLEAR ANTIBODY INCREASED [None]
  - ABDOMINAL PAIN LOWER [None]
  - NASOPHARYNGITIS [None]
